FAERS Safety Report 4264631-4 (Version None)
Quarter: 2004Q1

REPORT INFORMATION
  Report Type: 
  Country: None (occurrence: None)
  Receive Date: 20040102
  Receipt Date: 20031222
  Transmission Date: 20041129
  Serious: Yes (Life-Threatening, Hospitalization, Disabling)
  Sender: FDA-Public Use
  Company Number: 03P-056-0245594-00

PATIENT
  Age: 48 Year
  Sex: Male

DRUGS (4)
  1. DEPAKENE [Suspect]
     Dosage: PER ORAL
     Route: 048
     Dates: end: 20030816
  2. URAPIDIL [Suspect]
     Indication: HYPERTENSION
     Dosage: 60 MG, 3 IN 1 D, PER ORAL
     Route: 048
     Dates: start: 20030901
  3. NICARDIPINE HYDROCHLORIDE [Suspect]
     Indication: HYPERTENSION
     Dosage: 50 MG, 2 IN 1 D, PER ORAL
     Route: 048
     Dates: start: 20030908
  4. OLANZAPINE [Suspect]
     Indication: AGITATION
     Dosage: 5 MG, 1 IN 1 D, PER ORAL
     Route: 048
     Dates: start: 20030912

REACTIONS (8)
  - AGITATION [None]
  - ATRIOVENTRICULAR BLOCK COMPLETE [None]
  - BRADYCARDIA [None]
  - HEPATIC FAILURE [None]
  - HYPERTENSION [None]
  - HYPERTHERMIA MALIGNANT [None]
  - RENAL FAILURE [None]
  - SINUS ARREST [None]
